FAERS Safety Report 10866341 (Version 1)
Quarter: 2015Q1

REPORT INFORMATION
  Report Type: Spontaneous
  Country: US (occurrence: None)
  Receive Date: 20150219
  Receipt Date: 20150219
  Transmission Date: 20150721
  Serious: No
  Sender: FDA-Public Use
  Company Number: None

PATIENT
  Age: 37 Year
  Sex: Male
  Weight: 88.45 kg

DRUGS (1)
  1. HYDROCODONE/APAP 10/325 AUROLIFE PHARMA [Suspect]
     Active Substance: ACETAMINOPHEN\HYDROCODONE BITARTRATE
     Indication: PAIN
     Dosage: ONE TABLET EVERY FOUR HOURS SIX TIMES DAILY TAKEN BY MOUTH
     Route: 048
     Dates: start: 20150214

REACTIONS (4)
  - Product substitution issue [None]
  - Drug ineffective [None]
  - Headache [None]
  - Abdominal pain upper [None]

NARRATIVE: CASE EVENT DATE: 20150214
